FAERS Safety Report 16289207 (Version 1)
Quarter: 2019Q2

REPORT INFORMATION
  Report Type: Report from Study
  Country: US (occurrence: US)
  Receive Date: 20190509
  Receipt Date: 20190509
  Transmission Date: 20190711
  Serious: Yes (Other)
  Sender: FDA-Public Use
  Company Number: US-ROCHE-2310818

PATIENT
  Sex: Female

DRUGS (1)
  1. OCREVUS [Suspect]
     Active Substance: OCRELIZUMAB
     Indication: MULTIPLE SCLEROSIS
     Dosage: ONGOING: YES?DATE OF TREATMENT 16/JUN/2017, DEC/2017, 01/JUN/2018 AND 7/DEC/2018.
     Route: 065
     Dates: start: 20170601

REACTIONS (1)
  - Pneumonia [Recovered/Resolved]
